FAERS Safety Report 4543533-X (Version None)
Quarter: 2004Q4

REPORT INFORMATION
  Report Type: 
  Country: None (occurrence: None)
  Receive Date: 20041229
  Receipt Date: 20041229
  Transmission Date: 20050328
  Serious: Yes (Life-Threatening, Hospitalization, Disabling)
  Sender: FDA-Public Use
  Company Number: None

PATIENT
  Age: 32 Year
  Sex: Female
  Weight: 58.9676 kg

DRUGS (2)
  1. GENTAMICIN [Suspect]
  2. CEFEPIME [Suspect]

REACTIONS (5)
  - DEAFNESS BILATERAL [None]
  - DIZZINESS [None]
  - NAUSEA [None]
  - RENAL FAILURE [None]
  - VESTIBULAR DISORDER [None]
